FAERS Safety Report 4807507-3 (Version None)
Quarter: 2005Q4

REPORT INFORMATION
  Report Type: 
  Country: None (occurrence: None)
  Receive Date: 20051020
  Receipt Date: 20051006
  Transmission Date: 20060501
  Serious: Yes (Hospitalization)
  Sender: FDA-Public Use
  Company Number: MK200510-0073-1

PATIENT
  Age: 32 Year
  Sex: Female

DRUGS (4)
  1. HYDROMORPHONE HCL [Suspect]
     Indication: PAIN
     Dosage: 4 MG, QID, PRN, PO
     Route: 048
     Dates: start: 20040401
  2. DURAGESIC-100 [Suspect]
     Indication: PAIN
     Dates: start: 20031001
  3. NEURONTIN [Concomitant]
  4. CYMBALTA [Concomitant]

REACTIONS (3)
  - BRADYCARDIA [None]
  - CHEST PAIN [None]
  - HEADACHE [None]
